FAERS Safety Report 5543390-9 (Version None)
Quarter: 2007Q4

REPORT INFORMATION
  Report Type: 
  Country: None (occurrence: None)
  Receive Date: 20071206
  Receipt Date: 20071126
  Transmission Date: 20080405
  Serious: Yes (Hospitalization)
  Sender: FDA-Public Use
  Company Number: 230009J07USA

PATIENT
  Age: 58 Year
  Sex: Female

DRUGS (5)
  1. REBIF [Suspect]
     Indication: MULTIPLE SCLEROSIS
     Dosage: 44 MCG, 3 IN 1 WEEKS, SUBCUTANEOUS
     Route: 058
     Dates: start: 20050309
  2. DIURETICS (DIURETICS) [Suspect]
  3. BLOOD PRESSURE MEDICATION (ANTIHYPERTENSIVES) [Suspect]
  4. PREVACID [Concomitant]
  5. IBUPROFEN [Concomitant]

REACTIONS (7)
  - BLOOD POTASSIUM DECREASED [None]
  - CYSTITIS BACTERIAL [None]
  - MALAISE [None]
  - MULTIPLE SCLEROSIS RELAPSE [None]
  - OEDEMA PERIPHERAL [None]
  - STAPHYLOCOCCAL INFECTION [None]
  - URINARY INCONTINENCE [None]
